FAERS Safety Report 13349827 (Version 1)
Quarter: 2017Q1

REPORT INFORMATION
  Report Type: Spontaneous
  Country: US (occurrence: US)
  Receive Date: 20170320
  Receipt Date: 20170320
  Transmission Date: 20170429
  Serious: Yes (Other)
  Sender: FDA-Public Use
  Company Number: US-TORRENT-00002612

PATIENT
  Sex: Female

DRUGS (6)
  1. VALSARTAN. [Concomitant]
     Active Substance: VALSARTAN
  2. ALPRAZOLAM. [Suspect]
     Active Substance: ALPRAZOLAM
  3. WARFARIN [Concomitant]
     Active Substance: WARFARIN
  4. VALSARTAN. [Suspect]
     Active Substance: VALSARTAN
  5. ALPRAZOLAM. [Concomitant]
     Active Substance: ALPRAZOLAM
  6. XARELTO [Suspect]
     Active Substance: RIVAROXABAN

REACTIONS (2)
  - Malaise [Recovered/Resolved]
  - Haemorrhage [Recovered/Resolved]
